FAERS Safety Report 25438024 (Version 1)
Quarter: 2025Q2

REPORT INFORMATION
  Report Type: Spontaneous
  Country: US (occurrence: US)
  Receive Date: 20250616
  Receipt Date: 20250616
  Transmission Date: 20250717
  Serious: No
  Sender: AMGEN
  Company Number: US-AMGEN-USASP2025114003

PATIENT
  Sex: Female

DRUGS (3)
  1. REPATHA [Suspect]
     Active Substance: EVOLOCUMAB
     Indication: Product used for unknown indication
     Route: 065
     Dates: start: 20250330
  2. NAPROXEN [Concomitant]
     Active Substance: NAPROXEN
     Indication: Arthritis
     Route: 065
  3. VITAMINS [Concomitant]
     Active Substance: VITAMINS
     Dosage: UNK UNK, QD

REACTIONS (4)
  - Taste disorder [Not Recovered/Not Resolved]
  - Muscle spasms [Unknown]
  - Pain in extremity [Not Recovered/Not Resolved]
  - Paraesthesia [Recovered/Resolved]

NARRATIVE: CASE EVENT DATE: 20250101
